FAERS Safety Report 9849674 (Version 1)
Quarter: 2014Q1

REPORT INFORMATION
  Report Type: Spontaneous
  Country: US (occurrence: US)
  Receive Date: 20140128
  Receipt Date: 20140128
  Transmission Date: 20141002
  Serious: No
  Sender: FDA-Public Use
  Company Number: US-PFIZER INC-2014024405

PATIENT
  Sex: 0

DRUGS (2)
  1. XELJANZ [Suspect]
     Dosage: UNK
  2. XELJANZ [Suspect]
     Dosage: 5 MG, 1X/DAY

REACTIONS (1)
  - Diarrhoea [Unknown]
